FAERS Safety Report 16683340 (Version 1)
Quarter: 2019Q3

REPORT INFORMATION
  Report Type: Spontaneous
  Country: US (occurrence: US)
  Receive Date: 20190807
  Receipt Date: 20190807
  Transmission Date: 20191007
  Serious: No
  Sender: FDA-Public Use
  Company Number: None

PATIENT
  Age: 72 Year
  Sex: Female
  Weight: 85.5 kg

DRUGS (6)
  1. FUROSEMIDE 20 MG [Concomitant]
     Active Substance: FUROSEMIDE
  2. SPIRONOLACTO 100 MG [Concomitant]
  3. CVS LONG LASTING LUBRICANT EYE [Suspect]
     Active Substance: POLYETHYLENE GLYCOL 400\PROPYLENE GLYCOL
     Indication: OCULAR HYPERAEMIA
     Dosage: ?          QUANTITY:1 DROP(S);?
     Route: 047
     Dates: start: 20190725, end: 20190802
  4. BYSTOLIC [Concomitant]
     Active Substance: NEBIVOLOL HYDROCHLORIDE
  5. CVS LONG LASTING LUBRICANT EYE [Suspect]
     Active Substance: POLYETHYLENE GLYCOL 400\PROPYLENE GLYCOL
     Indication: EYE PRURITUS
     Dosage: ?          QUANTITY:1 DROP(S);?
     Route: 047
     Dates: start: 20190725, end: 20190802
  6. LOTIONS [Concomitant]

REACTIONS (19)
  - Skin hyperpigmentation [None]
  - Asthenia [None]
  - Visual impairment [None]
  - Speech disorder [None]
  - Dry skin [None]
  - Photophobia [None]
  - Hypersensitivity [None]
  - Skin tightness [None]
  - Product contamination [None]
  - Swelling face [None]
  - Rash pruritic [None]
  - Recalled product administered [None]
  - Food contamination [None]
  - Condition aggravated [None]
  - Eye swelling [None]
  - Lip swelling [None]
  - Nausea [None]
  - Eye pruritus [None]
  - Diarrhoea [None]

NARRATIVE: CASE EVENT DATE: 20190802
